FAERS Safety Report 4663426-7 (Version None)
Quarter: 2005Q2

REPORT INFORMATION
  Report Type: 
  Country: None (occurrence: None)
  Receive Date: 20050513
  Receipt Date: 20050427
  Transmission Date: 20051028
  Serious: Yes (Death)
  Sender: FDA-Public Use
  Company Number: 1802

PATIENT
  Age: 39 Year
  Sex: Male

DRUGS (4)
  1. AVINZA [Suspect]
     Indication: ABDOMINAL HERNIA
     Dosage: 30 MG QD PO
     Route: 048
     Dates: start: 20050425, end: 20050427
  2. AVINZA [Suspect]
     Indication: PAIN
     Dosage: 30 MG QD PO
     Route: 048
     Dates: start: 20050425, end: 20050427
  3. TRAZODONE [Concomitant]
  4. VENLAFAXINE HCL [Concomitant]

REACTIONS (1)
  - SUICIDE ATTEMPT [None]
